FAERS Safety Report 11050871 (Version 1)
Quarter: 2015Q2

REPORT INFORMATION
  Report Type: Spontaneous
  Country: US (occurrence: US)
  Receive Date: 20150421
  Receipt Date: 20150421
  Transmission Date: 20150821
  Serious: Yes (Hospitalization, Other)
  Sender: FDA-Public Use
  Company Number: US-ROCHE-1566383

PATIENT
  Age: 74 Year
  Sex: Female

DRUGS (1)
  1. PULMOZYME [Suspect]
     Active Substance: DORNASE ALFA
     Indication: RESPIRATORY TRACT CONGESTION
     Route: 065
     Dates: start: 20150415

REACTIONS (4)
  - Drug ineffective [Unknown]
  - Chronic obstructive pulmonary disease [Unknown]
  - Respiratory tract congestion [Not Recovered/Not Resolved]
  - Bronchitis [Unknown]

NARRATIVE: CASE EVENT DATE: 20150415
